FAERS Safety Report 12051103 (Version 1)
Quarter: 2016Q1

REPORT INFORMATION
  Report Type: Spontaneous
  Country: US (occurrence: US)
  Receive Date: 20160209
  Receipt Date: 20160209
  Transmission Date: 20160526
  Serious: Yes (Hospitalization)
  Sender: FDA-Public Use
  Company Number: US-SA-2016SA022167

PATIENT
  Age: 62 Year
  Sex: Female

DRUGS (1)
  1. RENVELA [Suspect]
     Active Substance: SEVELAMER CARBONATE
     Indication: HYPERPHOSPHATAEMIA
     Dosage: TABLET FOR ORAL SUSPENSION
     Route: 048

REACTIONS (2)
  - Feeding tube user [Not Recovered/Not Resolved]
  - Hospitalisation [Not Recovered/Not Resolved]
